FAERS Safety Report 25989066 (Version 1)
Quarter: 2025Q4

REPORT INFORMATION
  Report Type: Report from Study
  Country: EU (occurrence: EU)
  Receive Date: 20251103
  Receipt Date: 20251103
  Transmission Date: 20260119
  Serious: Yes (Other)
  Sender: ABBVIE
  Company Number: EU-ABBVIE-6528169

PATIENT
  Age: 76 Year
  Sex: Female

DRUGS (1)
  1. FOSCARBIDOPA\FOSLEVODOPA [Suspect]
     Active Substance: FOSCARBIDOPA\FOSLEVODOPA
     Indication: Product used for unknown indication
     Route: 058
     Dates: start: 20250314, end: 20250901

REACTIONS (2)
  - Cognitive disorder [Unknown]
  - Dementia [Unknown]

NARRATIVE: CASE EVENT DATE: 20250101
